FAERS Safety Report 5495822-2 (Version None)
Quarter: 2007Q4

REPORT INFORMATION
  Report Type: 
  Country: None (occurrence: None)
  Receive Date: 20071025
  Receipt Date: 20061027
  Transmission Date: 20080405
  Serious: No
  Sender: FDA-Public Use
  Company Number: A0625193A

PATIENT
  Age: 76 Year
  Sex: Female

DRUGS (4)
  1. ADVAIR DISKUS 100/50 [Suspect]
     Indication: ASTHMA
     Dosage: 100MCG TWICE PER DAY
     Route: 055
  2. FOSAMAX [Concomitant]
  3. ASPIRIN [Concomitant]
  4. CALCIUM [Concomitant]

REACTIONS (1)
  - AGEUSIA [None]
